FAERS Safety Report 13334107 (Version 1)
Quarter: 2017Q1

REPORT INFORMATION
  Report Type: Spontaneous
  Country: US (occurrence: US)
  Receive Date: 20170314
  Receipt Date: 20170314
  Transmission Date: 20170428
  Serious: Yes (Other)
  Sender: FDA-Public Use
  Company Number: US-INCYTE CORPORATION-2017IN001875

PATIENT
  Sex: Male

DRUGS (1)
  1. JAKAFI [Suspect]
     Active Substance: RUXOLITINIB
     Dosage: 10 MG, BID
     Route: 048
     Dates: start: 20160510

REACTIONS (5)
  - Fatigue [Unknown]
  - Diarrhoea [Unknown]
  - Asthenia [Unknown]
  - Aortic aneurysm [Unknown]
  - Nausea [Unknown]
